FAERS Safety Report 21793433 (Version 2)
Quarter: 2023Q2

REPORT INFORMATION
  Report Type: Report from Study
  Country: RU (occurrence: None)
  Receive Date: 20221229
  Receipt Date: 20230410
  Transmission Date: 20230721
  Serious: Yes (Life-Threatening)
  Sender: FDA-Public Use
  Company Number: RU-ROCHE-3252654

PATIENT
  Age: 68 Year
  Sex: Male

DRUGS (9)
  1. FARICIMAB [Suspect]
     Active Substance: FARICIMAB
     Indication: Diabetic retinal oedema
     Dosage: ON 15-DEC-2022 12:04 PM, THE PATIENT WAS RECEIVED MOST RECENT DOSE OF FARICIMAB AT 6 MG PRIOR TO AE/
     Route: 050
     Dates: start: 20210705
  2. LANTUS [Concomitant]
     Active Substance: INSULIN GLARGINE
     Indication: Diabetes mellitus
     Dosage: GIVEN FOR PROPHYLAXIS YES
     Route: 048
  3. VICTOZA [Concomitant]
     Active Substance: LIRAGLUTIDE
     Indication: Diabetes mellitus
     Dosage: GIVEN FOR PROPHYLAXIS YES
     Route: 048
  4. TORSEMIDE [Concomitant]
     Active Substance: TORSEMIDE
     Dosage: GIVEN FOR PROPHYLAXIS YES
     Route: 048
     Dates: start: 20191229
  5. PERINDOPRIL ERBUMINE [Concomitant]
     Active Substance: PERINDOPRIL ERBUMINE
     Indication: Hypertension
     Dosage: GIVEN FOR PROPHYLAXIS YES
     Route: 048
     Dates: start: 20191229
  6. METOPROLOL SUCCINATE [Concomitant]
     Active Substance: METOPROLOL SUCCINATE
     Indication: Myocardial ischaemia
     Dosage: GIVEN FOR PROPHYLAXIS YES
     Route: 048
     Dates: start: 20201005
  7. ASPIRIN [Concomitant]
     Active Substance: ASPIRIN
     Dosage: GIVEN FOR PROPHYLAXIS YES
     Route: 048
     Dates: start: 20201005
  8. DEXPANTHENOL [Concomitant]
     Active Substance: DEXPANTHENOL
     Dosage: GIVEN FOR PROPHYLAXIS YES
     Route: 047
     Dates: start: 20221215, end: 20221225
  9. OLOPATADINE [Concomitant]
     Active Substance: OLOPATADINE
     Dosage: GIVEN FOR PROPHYLAXIS YES
     Route: 047
     Dates: start: 20221215, end: 20221225

REACTIONS (2)
  - Heart rate increased [Recovered/Resolved]
  - Cardiac discomfort [Recovered/Resolved]

NARRATIVE: CASE EVENT DATE: 20221215
